FAERS Safety Report 17871939 (Version 1)
Quarter: 2020Q2

REPORT INFORMATION
  Report Type: Spontaneous
  Country: US (occurrence: US)
  Receive Date: 20200608
  Receipt Date: 20200608
  Transmission Date: 20200714
  Serious: No
  Sender: FDA-Public Use
  Company Number: US-KRAMERLABS-2019-US-021347

PATIENT
  Age: 77 Year
  Sex: Male
  Weight: 70.76 kg

DRUGS (4)
  1. MULTIVITAMIN [Concomitant]
     Active Substance: VITAMINS
  2. NIZORAL A-D [Suspect]
     Active Substance: KETOCONAZOLE
     Indication: RASH
     Dosage: APPLIED X2 FOR 1 DAY
     Route: 061
     Dates: start: 20191106, end: 20191106
  3. ATORVASTATIN [Concomitant]
     Active Substance: ATORVASTATIN
  4. PREDNISONE. [Concomitant]
     Active Substance: PREDNISONE

REACTIONS (4)
  - Product use in unapproved indication [Recovered/Resolved]
  - Rash erythematous [Recovered/Resolved]
  - Intentional product misuse [Recovered/Resolved]
  - Erythema [Recovered/Resolved]

NARRATIVE: CASE EVENT DATE: 20191106
